FAERS Safety Report 17477534 (Version 1)
Quarter: 2020Q1

REPORT INFORMATION
  Report Type: Spontaneous
  Country: US (occurrence: US)
  Receive Date: 20200228
  Receipt Date: 20200228
  Transmission Date: 20200409
  Serious: No
  Sender: FDA-Public Use
  Company Number: US-SMITH AND NEPHEW, INC-2020SMT00005

PATIENT
  Age: 82 Year
  Sex: Male
  Weight: 45.35 kg

DRUGS (5)
  1. UNSPECIFIED PAIN MEDICATION [Concomitant]
     Active Substance: UNSPECIFIED INGREDIENT
  2. COLLAGENASE SANTYL [Suspect]
     Active Substance: COLLAGENASE CLOSTRIDIUM HISTOLYTICUM
     Indication: WOUND
     Dosage: UNK, ONCE
     Route: 061
     Dates: start: 20200122, end: 20200122
  3. UNSPECIFIED PILLS [Concomitant]
     Active Substance: UNSPECIFIED INGREDIENT
     Dosage: ^TAKES 2 PILLS^, 1X/DAY DURING THE DAY
  4. UNSPECIFIED PILLS [Concomitant]
     Active Substance: UNSPECIFIED INGREDIENT
     Dosage: ^TAKE 11 PILLS^, 1X/DAY AT NIGHT
  5. UNSPECIFIED PILLS [Concomitant]
     Active Substance: UNSPECIFIED INGREDIENT
     Dosage: ^TAKES 9.5 PILLS^, 1X/DAY IN THE MORNING

REACTIONS (1)
  - Application site pain [Not Recovered/Not Resolved]

NARRATIVE: CASE EVENT DATE: 20200122
